FAERS Safety Report 11314293 (Version 1)
Quarter: 2015Q3

REPORT INFORMATION
  Report Type: Report from Study
  Country: ES (occurrence: ES)
  Receive Date: 20150727
  Receipt Date: 20150727
  Transmission Date: 20151125
  Serious: Yes (Hospitalization)
  Sender: FDA-Public Use
  Company Number: ES-GLAXOSMITHKLINE-ES2015GSK106323

PATIENT
  Sex: Male
  Weight: 54 kg

DRUGS (1)
  1. PAZOPANIB [Suspect]
     Active Substance: PAZOPANIB
     Indication: SARCOMA
     Dosage: 800 MG, QD
     Dates: start: 20150319

REACTIONS (1)
  - Hiccups [Recovering/Resolving]

NARRATIVE: CASE EVENT DATE: 20150714
